FAERS Safety Report 7760667-7 (Version None)
Quarter: 2011Q3

REPORT INFORMATION
  Report Type: 
  Country: None (occurrence: None)
  Receive Date: 20110919
  Receipt Date: 20110908
  Transmission Date: 20111222
  Serious: Yes (Hospitalization, Other)
  Sender: FDA-Public Use
  Company Number: US-ASTRAZENECA-2011SE54093

PATIENT

DRUGS (2)
  1. DEPAKOTE [Interacting]
  2. SEROQUEL [Suspect]
     Route: 048

REACTIONS (6)
  - HYPERSENSITIVITY [None]
  - RASH MACULAR [None]
  - LIP SWELLING [None]
  - STOMATITIS [None]
  - BODY TEMPERATURE INCREASED [None]
  - DRUG INTERACTION [None]
